FAERS Safety Report 14828660 (Version 1)
Quarter: 2018Q2

REPORT INFORMATION
  Report Type: Report from Study
  Country: US (occurrence: US)
  Receive Date: 20180430
  Receipt Date: 20180430
  Transmission Date: 20180711
  Serious: Yes (Death)
  Sender: FDA-Public Use
  Company Number: US-MYLANLABS-2018M1026718

PATIENT
  Age: 70 Year
  Sex: Male

DRUGS (3)
  1. GEMCITABINE [Suspect]
     Active Substance: GEMCITABINE\GEMCITABINE HYDROCHLORIDE
     Indication: DUCTAL ADENOCARCINOMA OF PANCREAS
     Dosage: 600 MG/M2 INFUSED OVER 30 MINUTES, ON DAYS 3 AND 10 OF A 21-DAY CYCLE
     Route: 041
  2. CISPLATIN. [Suspect]
     Active Substance: CISPLATIN
     Indication: DUCTAL ADENOCARCINOMA OF PANCREAS
     Dosage: 25 MG/M2 INFUSED OVER 30 MINUTES, ON DAYS 3 AND 10 OF A 21-DAY CYCLE
     Route: 041
  3. VELIPARIB [Suspect]
     Active Substance: VELIPARIB
     Indication: DUCTAL ADENOCARCINOMA OF PANCREAS
     Dosage: TWICE DAILY
     Route: 048

REACTIONS (1)
  - Large intestine perforation [Fatal]
